FAERS Safety Report 6700018-X (Version None)
Quarter: 2010Q2

REPORT INFORMATION
  Report Type: 
  Country: None (occurrence: None)
  Receive Date: 20100422
  Receipt Date: 20091229
  Transmission Date: 20101027
  Serious: No
  Sender: FDA-Public Use
  Company Number: 2010AL000063

PATIENT
  Age: 63 Year
  Sex: Female
  Weight: 50.8029 kg

DRUGS (7)
  1. FOLOTYN [Suspect]
     Indication: PERIPHERAL T-CELL LYMPHOMA UNSPECIFIED
     Dosage: ;QW;IV
     Route: 042
     Dates: start: 20091201
  2. FOLIC ACID [Concomitant]
  3. VITAMIN B-12 [Concomitant]
  4. GRANESETRON [Concomitant]
  5. DEXAMETHASONE [Concomitant]
  6. QUINAPRIL [Concomitant]
  7. CARVEDILOL [Concomitant]

REACTIONS (5)
  - DRUG INEFFECTIVE [None]
  - NAUSEA [None]
  - OEDEMA PERIPHERAL [None]
  - PAIN IN EXTREMITY [None]
  - STOMATITIS [None]
